FAERS Safety Report 8478798-5 (Version None)
Quarter: 2012Q2

REPORT INFORMATION
  Report Type: 
  Country: None (occurrence: None)
  Receive Date: 20120629
  Receipt Date: 20120625
  Transmission Date: 20120825
  Serious: Yes (Other)
  Sender: FDA-Public Use
  Company Number: US-SANOFI-AVENTIS-2012SA045552

PATIENT
  Sex: Female

DRUGS (4)
  1. TRASTUZUMAB [Suspect]
     Route: 065
  2. VINORELBINE [Suspect]
     Route: 065
  3. DOCETAXEL [Suspect]
     Route: 065
  4. XELODA [Suspect]
     Route: 065

REACTIONS (1)
  - DERMATOMYOSITIS [None]
